FAERS Safety Report 6537234-6 (Version None)
Quarter: 2010Q1

REPORT INFORMATION
  Report Type: 
  Country: None (occurrence: None)
  Receive Date: 20100114
  Receipt Date: 20100107
  Transmission Date: 20100710
  Serious: No
  Sender: FDA-Public Use
  Company Number: BR-ROCHE-626323

PATIENT
  Sex: Female
  Weight: 3.2 kg

DRUGS (3)
  1. ROACUTAN [Suspect]
     Indication: ACNE
     Route: 064
     Dates: start: 20080201, end: 20081001
  2. FOLIC ACID [Concomitant]
  3. VITAMIN [Concomitant]
     Dosage: DRUG: NOS VITAMINS

REACTIONS (2)
  - NO ADVERSE EVENT [None]
  - PREGNANCY [None]
